FAERS Safety Report 10217505 (Version 4)
Quarter: 2017Q1

REPORT INFORMATION
  Report Type: Spontaneous
  Country: MX (occurrence: MX)
  Receive Date: 20140604
  Receipt Date: 20170130
  Transmission Date: 20170428
  Serious: Yes (Death, Other)
  Sender: FDA-Public Use
  Company Number: MX-UCBSA-122804

PATIENT
  Age: 43 Year
  Sex: Male

DRUGS (5)
  1. LEVETIRACETAM. [Concomitant]
     Active Substance: LEVETIRACETAM
     Indication: EPILEPSY
     Dosage: 500 MG, 2X/DAY (BID)
     Route: 048
     Dates: start: 20140416, end: 20140509
  2. ESTAZOLAM. [Concomitant]
     Active Substance: ESTAZOLAM
     Indication: EPILEPSY
     Dosage: 2 MG, ONCE DAILY (QD)
     Route: 048
     Dates: start: 20140416, end: 20140509
  3. VIMPAT [Suspect]
     Active Substance: LACOSAMIDE
     Indication: PRODUCT USED FOR UNKNOWN INDICATION
     Dosage: 100 MG, 2X/DAY (BID) (EVERY 12 HOURS)
     Route: 048
     Dates: start: 20140414, end: 20140509
  4. VALDOXAN [Concomitant]
     Active Substance: AGOMELATINE
     Indication: EPILEPSY
     Dosage: 25 MG, ONCE DAILY (QD)
     Route: 048
     Dates: start: 20140416, end: 20140509
  5. METFORMIN [Concomitant]
     Active Substance: METFORMIN HYDROCHLORIDE
     Indication: EPILEPSY
     Dosage: 850 MG, ONCE DAILY (QD)
     Route: 048
     Dates: start: 2009, end: 20140509

REACTIONS (1)
  - Myocardial infarction [Fatal]

NARRATIVE: CASE EVENT DATE: 20140509
